FAERS Safety Report 15408897 (Version 1)
Quarter: 2018Q3

REPORT INFORMATION
  Report Type: Spontaneous
  Country: CL (occurrence: CL)
  Receive Date: 20180920
  Receipt Date: 20180920
  Transmission Date: 20181010
  Serious: Yes (Other)
  Sender: FDA-Public Use
  Company Number: CL-ASTRAZENECA-2018SF18161

PATIENT
  Sex: Female

DRUGS (1)
  1. IRESSA [Suspect]
     Active Substance: GEFITINIB
     Dosage: 250
     Route: 048

REACTIONS (7)
  - Fall [Unknown]
  - Pulmonary mass [Not Recovered/Not Resolved]
  - Chest injury [Unknown]
  - Hepatic lesion [Unknown]
  - Hilar lymphadenopathy [Not Recovered/Not Resolved]
  - Pleural effusion [Unknown]
  - Atelectasis [Unknown]
